FAERS Safety Report 23619342 (Version 1)
Quarter: 2024Q1

REPORT INFORMATION
  Report Type: Spontaneous
  Country: US (occurrence: US)
  Receive Date: 20240311
  Receipt Date: 20240311
  Transmission Date: 20240409
  Serious: No
  Sender: FDA-Public Use
  Company Number: US-AstraZeneca-CH-00581425A

PATIENT
  Sex: Female

DRUGS (2)
  1. KANUMA [Suspect]
     Active Substance: SEBELIPASE ALFA
     Indication: C3 glomerulopathy
     Dosage: 3 MILLIGRAM/KILOGRAM, Q2W
     Route: 042
  2. KANUMA [Suspect]
     Active Substance: SEBELIPASE ALFA
     Dosage: UNK, QW
     Route: 065

REACTIONS (2)
  - Diarrhoea [Recovered/Resolved]
  - Therapeutic response decreased [Unknown]
